FAERS Safety Report 5661897-0 (Version None)
Quarter: 2008Q1

REPORT INFORMATION
  Report Type: 
  Country: None (occurrence: None)
  Receive Date: 20080312
  Receipt Date: 20080310
  Transmission Date: 20080703
  Serious: Yes (Life-Threatening, Hospitalization)
  Sender: FDA-Public Use
  Company Number: IE-JNJFOC-20080200805

PATIENT
  Sex: Male

DRUGS (13)
  1. HALDOL [Suspect]
     Indication: PSYCHOTIC DISORDER
     Route: 030
  2. HALDOL [Suspect]
     Indication: DEPRESSION
     Route: 030
  3. HALDOL [Suspect]
     Indication: SEDATION
     Route: 030
  4. SERTRALINE [Concomitant]
     Indication: DEPRESSION
     Route: 048
  5. ZOPICLONE [Concomitant]
     Indication: SLEEP DISORDER
     Route: 048
  6. AMISULPRIDE [Concomitant]
     Indication: DEPRESSION
     Route: 048
  7. GLUCOPHAGE [Concomitant]
     Indication: DIABETES MELLITUS
     Route: 048
  8. DIAMICRON [Concomitant]
     Indication: DIABETES MELLITUS
     Route: 048
  9. PERINDOPRIL [Concomitant]
     Indication: HYPERTENSION
     Route: 048
  10. ATORVASTATIN CALCIUM [Concomitant]
     Indication: BLOOD CHOLESTEROL
     Route: 048
  11. ASPIRIN [Concomitant]
     Indication: CEREBROVASCULAR ACCIDENT
     Route: 048
  12. ASPIRIN AND DIPYRIDAMOLE [Concomitant]
     Indication: CEREBROVASCULAR ACCIDENT
     Route: 048
  13. BISOPROLOL FUMARATE [Concomitant]
     Indication: HYPERTENSION
     Route: 048

REACTIONS (2)
  - CARDIAC ARREST [None]
  - DYSTONIA [None]
